FAERS Safety Report 11449810 (Version 1)
Quarter: 2015Q3

REPORT INFORMATION
  Report Type: Spontaneous
  Country: US (occurrence: US)
  Receive Date: 20150903
  Receipt Date: 20150903
  Transmission Date: 20151125
  Serious: No
  Sender: FDA-Public Use
  Company Number: US-ROCHE-1049963

PATIENT
  Age: 48 Year
  Sex: Female

DRUGS (2)
  1. COPEGUS [Suspect]
     Active Substance: RIBAVIRIN
     Indication: HEPATITIS C
     Route: 048
     Dates: start: 20110516, end: 20120508
  2. PEGASYS [Suspect]
     Active Substance: PEGINTERFERON ALFA-2A
     Indication: HEPATITIS C
     Route: 058
     Dates: start: 20110516, end: 20120508

REACTIONS (8)
  - Platelet count decreased [Unknown]
  - Anaemia [Unknown]
  - Depression [Unknown]
  - Oral mucosal blistering [Not Recovered/Not Resolved]
  - Skin ulcer [Unknown]
  - Cough [Unknown]
  - Dyspnoea [Unknown]
  - Rash pruritic [Recovering/Resolving]

NARRATIVE: CASE EVENT DATE: 201202
